FAERS Safety Report 7008913-1 (Version None)
Quarter: 2010Q3

REPORT INFORMATION
  Report Type: 
  Country: None (occurrence: None)
  Receive Date: 20100420
  Receipt Date: 20100309
  Transmission Date: 20110219
  Serious: No
  Sender: FDA-Public Use
  Company Number: LMI-2010-00127

PATIENT
  Age: 40 Year
  Sex: Female
  Weight: 81.6475 kg

DRUGS (1)
  1. ABLAVAR [Suspect]
     Indication: ANGIOGRAM
     Dosage: (10 ML),INTRAVENOUS BOLUS
     Route: 040
     Dates: start: 20100201, end: 20100201

REACTIONS (4)
  - FEELING HOT [None]
  - GENITAL BURNING SENSATION [None]
  - RASH [None]
  - URTICARIA [None]
